FAERS Safety Report 5583446-8 (Version None)
Quarter: 2007Q4

REPORT INFORMATION
  Report Type: 
  Country: None (occurrence: None)
  Receive Date: 20071231
  Receipt Date: 20071220
  Transmission Date: 20080405
  Serious: Yes (Death)
  Sender: FDA-Public Use
  Company Number: S07-USA-06445-01

PATIENT
  Age: 46 Year
  Sex: Female

DRUGS (1)
  1. CELEXA [Suspect]
     Dates: start: 20010828, end: 20010831

REACTIONS (4)
  - ASPHYXIA [None]
  - COMPLETED SUICIDE [None]
  - FEELING ABNORMAL [None]
  - SUICIDAL IDEATION [None]
